FAERS Safety Report 10083200 (Version 3)
Quarter: 2014Q3

REPORT INFORMATION
  Report Type: Spontaneous
  Country: US (occurrence: US)
  Receive Date: 20140417
  Receipt Date: 20140911
  Transmission Date: 20150326
  Serious: Yes (Other)
  Sender: FDA-Public Use
  Company Number: US-UCBSA-117808

PATIENT
  Sex: Female
  Weight: 99.77 kg

DRUGS (10)
  1. KLONOPIN [Concomitant]
     Active Substance: CLONAZEPAM
     Indication: ANXIETY
     Dosage: TABLET DISPERSION
     Route: 048
  2. KEPPRA [Suspect]
     Active Substance: LEVETIRACETAM
     Indication: EPILEPSY
     Dosage: 500 MG, 3X/DAY (TID)
     Route: 048
  3. KLONOPIN [Concomitant]
     Active Substance: CLONAZEPAM
     Dosage: UNKNOWN DOSE
     Route: 048
  4. CARBATROL [Concomitant]
     Active Substance: CARBAMAZEPINE
     Dosage: 300MCG, EXTENDED RELEASE CAPSULE, 12HR,1 GAM AND 2QHS
     Route: 048
     Dates: start: 20120730
  5. KEPPRA [Suspect]
     Active Substance: LEVETIRACETAM
     Dosage: 2 PILLS DAILY
     Route: 048
  6. VIMPAT [Suspect]
     Active Substance: LACOSAMIDE
     Dosage: UNK
     Dates: start: 2013
  7. FERROUS SULFATE [Concomitant]
     Active Substance: FERROUS SULFATE\FERROUS SULFATE, DRIED
     Dosage: (325 (65 FE)MG
     Route: 048
     Dates: start: 20140402
  8. FOLIC ACID. [Concomitant]
     Active Substance: FOLIC ACID
     Dosage: 2 TABLETS A DAY
     Route: 048
     Dates: start: 20130618
  9. LEVOTHYROXINE SODIUM. [Concomitant]
     Active Substance: LEVOTHYROXINE SODIUM
     Dosage: 125 ?G, ONCE DAILY (QD)
     Route: 048
  10. KEPPRA [Suspect]
     Active Substance: LEVETIRACETAM
     Indication: CONVULSION
     Dosage: 500 MG, 4X/DAY (QID)
     Route: 048
     Dates: start: 2013

REACTIONS (14)
  - Aura [Not Recovered/Not Resolved]
  - Hypoaesthesia [Unknown]
  - Urticaria [Unknown]
  - Convulsion [Recovering/Resolving]
  - Anticonvulsant drug level below therapeutic [Unknown]
  - Anxiety [Recovering/Resolving]
  - Panic attack [Not Recovered/Not Resolved]
  - Dizziness [Unknown]
  - Paraesthesia [Unknown]
  - Dry skin [Unknown]
  - Haemorrhoids [Unknown]
  - Dyspnoea [Not Recovered/Not Resolved]
  - Infection [Unknown]
  - Rash [Unknown]
